FAERS Safety Report 7756584-9 (Version None)
Quarter: 2011Q3

REPORT INFORMATION
  Report Type: 
  Country: None (occurrence: None)
  Receive Date: 20110916
  Receipt Date: 20110909
  Transmission Date: 20111222
  Serious: Yes (Other)
  Sender: FDA-Public Use
  Company Number: PHEH2010US03864

PATIENT
  Sex: Female
  Weight: 62.585 kg

DRUGS (1)
  1. ZOMETA [Suspect]
     Dosage: UNK

REACTIONS (14)
  - HYPERTENSION [None]
  - DIABETES MELLITUS [None]
  - DEFORMITY [None]
  - INFECTION [None]
  - DYSLIPIDAEMIA [None]
  - STRESS [None]
  - CHEST PAIN [None]
  - BLOOD CHOLESTEROL INCREASED [None]
  - CORONARY ARTERY DISEASE [None]
  - OSTEONECROSIS OF JAW [None]
  - INJURY [None]
  - PAIN [None]
  - EMOTIONAL DISTRESS [None]
  - PHYSICAL DISABILITY [None]
